FAERS Safety Report 5325183-0 (Version None)
Quarter: 2007Q2

REPORT INFORMATION
  Report Type: 
  Country: None (occurrence: None)
  Receive Date: 20070515
  Receipt Date: 20070504
  Transmission Date: 20071010
  Serious: Yes (Hospitalization, Disabling)
  Sender: FDA-Public Use
  Company Number: B0467998A

PATIENT
  Age: 71 Year
  Sex: Male
  Weight: 104 kg

DRUGS (7)
  1. AVANDIA [Suspect]
     Dosage: 4MG TWICE PER DAY
     Route: 048
     Dates: start: 20050411, end: 20070423
  2. SIMVASTATIN [Suspect]
     Indication: DRUG USE FOR UNKNOWN INDICATION
     Dosage: 20MG AT NIGHT
     Route: 048
     Dates: start: 20000101, end: 20070423
  3. ATENOLOL [Concomitant]
     Dosage: 75MG IN THE MORNING
     Route: 065
  4. METFORMIN HCL [Concomitant]
     Dosage: 500MG THREE TIMES PER DAY
     Route: 065
  5. ASPIRIN [Concomitant]
     Dosage: 75MG IN THE MORNING
     Route: 065
  6. BISOPROLOL FUMARATE [Concomitant]
     Dosage: 2.5MG PER DAY
     Route: 065
  7. METFORMIN HCL [Concomitant]
     Dosage: 850MG TWICE PER DAY

REACTIONS (3)
  - ABDOMINAL PAIN [None]
  - INTESTINAL ISCHAEMIA [None]
  - PANCREATITIS RELAPSING [None]
